FAERS Safety Report 13868934 (Version 1)
Quarter: 2017Q3

REPORT INFORMATION
  Report Type: Report from Study
  Country: PL (occurrence: PL)
  Receive Date: 20170815
  Receipt Date: 20170815
  Transmission Date: 20171127
  Serious: Yes (Hospitalization)
  Sender: FDA-Public Use
  Company Number: PHHO2014PL021056

PATIENT
  Age: 61 Year
  Sex: Male

DRUGS (9)
  1. BIOTRAKSON [Concomitant]
     Active Substance: CEFTRIAXONE SODIUM
     Indication: CONJUNCTIVITIS
     Dosage: 2 G, QD
     Route: 042
     Dates: start: 20140826, end: 20140827
  2. NORMAL SALINE [Concomitant]
     Active Substance: SODIUM CHLORIDE
     Indication: HYPONATRAEMIA
     Dosage: 500 ML, QD
     Route: 042
     Dates: start: 20140827, end: 20140901
  3. NACL 10% [Concomitant]
     Indication: HYPONATRAEMIA
     Dosage: 10 ML, QD
     Route: 042
     Dates: start: 20140827, end: 20140901
  4. PLACEBO [Suspect]
     Active Substance: UNSPECIFIED INGREDIENT
     Indication: THROMBOCYTOPENIA
     Dosage: ?????
     Route: 048
     Dates: start: 20140224, end: 20140519
  5. SULPERAZON [Concomitant]
     Active Substance: CEFOPERAZONE SODIUM\SULBACTAM SODIUM
     Indication: PNEUMONIA
     Dosage: 2 G, BID
     Route: 042
     Dates: start: 20140827, end: 20140908
  6. SULFACETAMIDE. [Concomitant]
     Active Substance: SULFACETAMIDE
     Indication: CONJUNCTIVITIS
     Dosage: 2 GTT, TID
     Route: 047
     Dates: start: 20140826, end: 20140908
  7. GENTAMYCINUM [Concomitant]
     Indication: CONJUNCTIVITIS
     Dosage: 1 DF, QD
     Route: 047
     Dates: start: 20140826, end: 20140901
  8. POSORUTIN [Concomitant]
     Indication: CONJUNCTIVITIS
     Dosage: 2 GTT, TID
     Route: 047
     Dates: start: 20140826, end: 20140901
  9. BIODACYNA [Concomitant]
     Active Substance: AMIKACIN SULFATE
     Indication: PNEUMONIA
     Dosage: 1 G, QD
     Route: 042
     Dates: start: 20140901, end: 20140908

REACTIONS (1)
  - Lung neoplasm [Not Recovered/Not Resolved]

NARRATIVE: CASE EVENT DATE: 20140902
